FAERS Safety Report 5725913-X (Version None)
Quarter: 2008Q2

REPORT INFORMATION
  Report Type: 
  Country: None (occurrence: None)
  Receive Date: 20080429
  Receipt Date: 20080414
  Transmission Date: 20081010
  Serious: Yes (Death, Life-Threatening, Hospitalization, Other)
  Sender: FDA-Public Use
  Company Number: 47367

PATIENT
  Age: 54 Year
  Sex: Female

DRUGS (2)
  1. CYCLOSPORINE [Suspect]
     Indication: GRAFT VERSUS HOST DISEASE
  2. CYCLOSPORINE [Suspect]
     Indication: PROPHYLAXIS

REACTIONS (7)
  - ENCEPHALITIS [None]
  - HEADACHE [None]
  - HEPATIC ENZYME INCREASED [None]
  - NUCHAL RIGIDITY [None]
  - PNEUMONIA BACTERIAL [None]
  - SEPSIS [None]
  - TOXOPLASMOSIS [None]
